FAERS Safety Report 17500065 (Version 2)
Quarter: 2020Q2

REPORT INFORMATION
  Report Type: Report from Study
  Country: None (occurrence: IE)
  Receive Date: 20200305
  Receipt Date: 20200508
  Transmission Date: 20200713
  Serious: Yes (Death, Other)
  Sender: FDA-Public Use
  Company Number: IE-ABBVIE-20K-229-3304511-00

PATIENT
  Age: 74 Year
  Sex: Female

DRUGS (1)
  1. HUMIRA [Suspect]
     Active Substance: ADALIMUMAB
     Indication: RHEUMATOID ARTHRITIS
     Route: 058
     Dates: start: 20110801, end: 201905

REACTIONS (5)
  - Adenocarcinoma metastatic [Fatal]
  - Pulmonary mass [Unknown]
  - Generalised tonic-clonic seizure [Unknown]
  - Central nervous system lesion [Unknown]
  - Syncope [Unknown]

NARRATIVE: CASE EVENT DATE: 20190521
